FAERS Safety Report 18959885 (Version 4)
Quarter: 2021Q1

REPORT INFORMATION
  Report Type: Report from Study
  Country: ES (occurrence: ES)
  Receive Date: 20210302
  Receipt Date: 20210329
  Transmission Date: 20210420
  Serious: Yes (Death, Life-Threatening)
  Sender: FDA-Public Use
  Company Number: ES-PFIZER INC-2021207199

PATIENT
  Age: 17 Year
  Sex: Male

DRUGS (8)
  1. BUSULFAN. [Concomitant]
     Active Substance: BUSULFAN
     Indication: BONE MARROW CONDITIONING REGIMEN
     Dosage: 3.2 MG/KG
     Route: 042
     Dates: start: 20201022, end: 20201024
  2. TIOTHEPA [Concomitant]
     Indication: BONE MARROW CONDITIONING REGIMEN
     Dosage: 5 MG/KG
     Route: 042
     Dates: start: 20201020, end: 20201021
  3. FLUDARABINE [Concomitant]
     Active Substance: FLUDARABINE PHOSPHATE
     Indication: BONE MARROW CONDITIONING REGIMEN
     Dosage: 50 MG/KG
     Route: 042
     Dates: start: 20201022, end: 20201024
  4. INOTUZUMAB OZOGAMICIN [Suspect]
     Active Substance: INOTUZUMAB OZOGAMICIN
     Indication: ACUTE LYMPHOCYTIC LEUKAEMIA
     Dosage: 1 MG
     Dates: start: 20200701, end: 20200820
  5. METHYLPREDNISOLONE. [Concomitant]
     Active Substance: METHYLPREDNISOLONE
     Indication: ACUTE LYMPHOCYTIC LEUKAEMIA
     Dosage: 50 MG
     Dates: start: 20200708, end: 20200820
  6. VINCRISTINE SULFATE. [Concomitant]
     Active Substance: VINCRISTINE SULFATE
     Indication: ACUTE LYMPHOCYTIC LEUKAEMIA
     Dosage: 2 MG
     Dates: start: 20200701, end: 20200724
  7. METHOTREXATE SODIUM. [Concomitant]
     Active Substance: METHOTREXATE SODIUM
     Indication: ACUTE LYMPHOCYTIC LEUKAEMIA
     Dosage: 15 MG
     Dates: start: 20200625, end: 20200805
  8. DEXAMETHASONE. [Concomitant]
     Active Substance: DEXAMETHASONE
     Indication: ACUTE LYMPHOCYTIC LEUKAEMIA
     Dosage: 20 MG
     Dates: start: 20200701, end: 20200721

REACTIONS (1)
  - Venoocclusive disease [Unknown]

NARRATIVE: CASE EVENT DATE: 20201217
